FAERS Safety Report 4326140-3 (Version None)
Quarter: 2004Q1

REPORT INFORMATION
  Report Type: 
  Country: None (occurrence: None)
  Receive Date: 20040324
  Receipt Date: 20040310
  Transmission Date: 20041129
  Serious: Yes (Hospitalization)
  Sender: FDA-Public Use
  Company Number: 04H-078-0253116

PATIENT
  Sex: Female

DRUGS (1)
  1. AMMONIUM CHLORIDE [Suspect]

REACTIONS (9)
  - ACIDOSIS HYPERCHLORAEMIC [None]
  - AZOTAEMIA [None]
  - CHILD ABUSE [None]
  - DRUG TOXICITY [None]
  - FAILURE TO THRIVE [None]
  - FEEDING PROBLEM IN NEWBORN [None]
  - INTENTIONAL OVERDOSE [None]
  - TACHYPNOEA [None]
  - VOMITING [None]
